FAERS Safety Report 7799979-X (Version None)
Quarter: 2011Q4

REPORT INFORMATION
  Report Type: 
  Country: None (occurrence: None)
  Receive Date: 20111006
  Receipt Date: 20110926
  Transmission Date: 20120403
  Serious: Yes (Other)
  Sender: FDA-Public Use
  Company Number: CA-JNJFOC-20110904766

PATIENT

DRUGS (3)
  1. INVEGA SUSTENNA [Suspect]
     Indication: SCHIZOPHRENIA
     Dosage: A WEEK LATER
     Route: 030
  2. INVEGA SUSTENNA [Suspect]
     Route: 030
  3. INVEGA SUSTENNA [Suspect]
     Dosage: JUNE 29TH-LOADING DOSE
     Route: 030

REACTIONS (4)
  - BURNING SENSATION [None]
  - PSYCHOTIC DISORDER [None]
  - ACTIVITIES OF DAILY LIVING IMPAIRED [None]
  - INCORRECT STORAGE OF DRUG [None]
